FAERS Safety Report 19789925 (Version 1)
Quarter: 2021Q3

REPORT INFORMATION
  Report Type: Report from Study
  Country: FR (occurrence: FR)
  Receive Date: 20210905
  Receipt Date: 20210905
  Transmission Date: 20211014
  Serious: Yes (Hospitalization)
  Sender: FDA-Public Use
  Company Number: FR-SERVIER-S21009748

PATIENT

DRUGS (8)
  1. TN UNSPECIFIED [Concomitant]
     Indication: ACUTE LYMPHOCYTIC LEUKAEMIA
     Dosage: 85 MG, D3 TO D6, D10 TO D13, D31 TO UNKNOWN
     Route: 042
     Dates: start: 20210602, end: 20210717
  2. TN UNSPECIFIED [Concomitant]
     Indication: ACUTE LYMPHOCYTIC LEUKAEMIA
     Dosage: 70 MG, D1 TO D14, D29 TO D42
     Route: 048
     Dates: start: 20210531, end: 20210718
  3. TN UNSPECIFIED [Concomitant]
     Dosage: 30 MG, D3, D31
     Route: 037
     Dates: start: 20210602, end: 20210707
  4. TN UNSPECIFIED [Concomitant]
     Indication: ACUTE LYMPHOCYTIC LEUKAEMIA
     Dosage: 1150 MG, D1, D29
     Route: 042
     Dates: start: 20210531, end: 20210705
  5. PEGASPARGASE [Suspect]
     Active Substance: PEGASPARGASE
     Indication: ACUTE LYMPHOCYTIC LEUKAEMIA
     Dosage: 2875 IU, D15, D43
     Route: 042
     Dates: start: 20210614, end: 20210719
  6. TN UNSPECIFIED [Concomitant]
     Indication: ACUTE LYMPHOCYTIC LEUKAEMIA
     Dosage: 1.7 MG, D15, D22, D43, D50
     Route: 042
     Dates: start: 20210614, end: 20210726
  7. TN UNSPECIFIED [Concomitant]
     Indication: ACUTE LYMPHOCYTIC LEUKAEMIA
     Dosage: 15 MG, D3, D31
     Route: 037
     Dates: start: 20210602, end: 20210707
  8. TN UNSPECIFIED [Concomitant]
     Indication: ACUTE LYMPHOCYTIC LEUKAEMIA
     Dosage: 12 MG, D3, D31
     Route: 037
     Dates: start: 20210602, end: 20210707

REACTIONS (1)
  - Clostridium difficile colitis [Recovered/Resolved]

NARRATIVE: CASE EVENT DATE: 20210726
